FAERS Safety Report 8425968-8 (Version None)
Quarter: 2012Q2

REPORT INFORMATION
  Report Type: 
  Country: None (occurrence: None)
  Receive Date: 20120601
  Receipt Date: 20120523
  Transmission Date: 20120825
  Serious: Yes (Other)
  Sender: FDA-Public Use
  Company Number: 2012SP028895

PATIENT
  Sex: Female

DRUGS (1)
  1. IMPLANON [Suspect]
     Indication: CONTRACEPTION
     Dates: start: 20110101

REACTIONS (5)
  - COITAL BLEEDING [None]
  - VOMITING [None]
  - BREAST OEDEMA [None]
  - ABDOMINAL DISTENSION [None]
  - UTERINE NEOPLASM [None]
